FAERS Safety Report 10741507 (Version 4)
Quarter: 2016Q4

REPORT INFORMATION
  Report Type: Spontaneous
  Country: FR (occurrence: FR)
  Receive Date: 20150127
  Receipt Date: 20161017
  Transmission Date: 20170206
  Serious: Yes (Hospitalization, Disabling, Other)
  Sender: FDA-Public Use
  Company Number: FR-PFIZER INC-2015024796

PATIENT
  Age: 48 Year
  Sex: Female

DRUGS (4)
  1. VENTOLINE [Concomitant]
     Active Substance: ALBUTEROL
  2. EFFEXOR [Concomitant]
     Active Substance: VENLAFAXINE HYDROCHLORIDE
  3. XANAX [Concomitant]
     Active Substance: ALPRAZOLAM
     Dosage: 0.25 MG, UNK
  4. ADEPAL [Suspect]
     Active Substance: ETHINYL ESTRADIOL\LEVONORGESTREL
     Indication: CONTRACEPTION
     Dosage: 1 DF, 1X/DAY, (30-40MCG/ 150-200MCG)
     Route: 048
     Dates: end: 20140204

REACTIONS (4)
  - Diplopia [Recovered/Resolved]
  - Hemiparesis [Recovered/Resolved]
  - Hypertension [Unknown]
  - Ischaemic stroke [Recovered/Resolved]

NARRATIVE: CASE EVENT DATE: 20140204
